FAERS Safety Report 7808906-8 (Version None)
Quarter: 2011Q4

REPORT INFORMATION
  Report Type: 
  Country: None (occurrence: None)
  Receive Date: 20111012
  Receipt Date: 20111006
  Transmission Date: 20120403
  Serious: Yes (Hospitalization, Other)
  Sender: FDA-Public Use
  Company Number: PHHY2011JP72845

PATIENT
  Age: 77 Year
  Sex: Female

DRUGS (5)
  1. RASILEZ [Suspect]
     Indication: BLOOD PRESSURE INADEQUATELY CONTROLLED
     Dosage: 150 MG,
     Route: 048
     Dates: start: 20110701
  2. TELMISARTAN [Concomitant]
     Dosage: 5 MG,
     Route: 048
     Dates: start: 20110701
  3. CADUET NO.3 [Concomitant]
     Route: 048
     Dates: start: 20110701
  4. AMLODIPINE [Concomitant]
     Route: 048
  5. LIPIDIL [Concomitant]

REACTIONS (5)
  - GLOMERULAR FILTRATION RATE DECREASED [None]
  - BLOOD BILIRUBIN INCREASED [None]
  - BLOOD ALKALINE PHOSPHATASE INCREASED [None]
  - GAMMA-GLUTAMYLTRANSFERASE INCREASED [None]
  - OEDEMA [None]
